FAERS Safety Report 9704473 (Version 2)
Quarter: 2013Q4

REPORT INFORMATION
  Report Type: Spontaneous
  Country: ZA (occurrence: ZA)
  Receive Date: 20131122
  Receipt Date: 20131202
  Transmission Date: 20140711
  Serious: Yes (Death, Hospitalization)
  Sender: FDA-Public Use
  Company Number: ZA-PFIZER INC-2013332728

PATIENT
  Age: 75 Year
  Sex: Male

DRUGS (1)
  1. SERENACE [Suspect]
     Indication: PSYCHOTIC DISORDER
     Dosage: 5 MG, 2X/DAY (BD)
     Route: 048
     Dates: start: 20130801

REACTIONS (1)
  - Death [Fatal]
